FAERS Safety Report 6299188-X (Version None)
Quarter: 2009Q3

REPORT INFORMATION
  Report Type: 
  Country: None (occurrence: None)
  Receive Date: 20090806
  Receipt Date: 20090723
  Transmission Date: 20100115
  Serious: Yes (Hospitalization)
  Sender: FDA-Public Use
  Company Number: GR-ASTRAZENECA-2009SE05753

PATIENT
  Age: 77 Year
  Sex: Male

DRUGS (9)
  1. QUETIAPINE FUMARATE [Suspect]
     Indication: DEMENTIA
     Route: 048
  2. AMISULPRIDE [Concomitant]
     Indication: DEMENTIA
  3. RISPERIDONE [Concomitant]
     Indication: DEMENTIA
  4. MEMANTINE [Concomitant]
     Indication: DEMENTIA
  5. DONEPEZILE [Concomitant]
     Indication: DEMENTIA
  6. FUROSEMIDE [Concomitant]
     Indication: JOINT SWELLING
  7. LEVOCARNITINE [Concomitant]
  8. VITAMIN E [Concomitant]
  9. OMEPRAZOLE [Concomitant]

REACTIONS (1)
  - PEMPHIGOID [None]
